FAERS Safety Report 20826176 (Version 1)
Quarter: 2022Q2

REPORT INFORMATION
  Report Type: Spontaneous
  Country: CA (occurrence: CA)
  Receive Date: 20220513
  Receipt Date: 20220513
  Transmission Date: 20220721
  Serious: Yes (Death)
  Sender: FDA-Public Use
  Company Number: CA-PFIZER INC-2020225809

PATIENT
  Age: 52 Year
  Sex: Female

DRUGS (9)
  1. IBRANCE [Suspect]
     Active Substance: PALBOCICLIB
     Indication: Breast cancer metastatic
     Dosage: 21 DAYS, 7 DAYS OFF
     Route: 048
     Dates: start: 20200610
  2. LETROZOLE [Concomitant]
     Active Substance: LETROZOLE
     Dosage: UNK
     Dates: start: 20200608
  3. XGEVA [Concomitant]
     Active Substance: DENOSUMAB
     Dosage: 120 MG, Q12W (EVERY 12 WEEKS)
     Route: 058
  4. ONDANSETRON [Concomitant]
     Active Substance: ONDANSETRON
     Indication: Nausea
     Dosage: 8 MG, 3X/DAY
     Route: 048
  5. VITAMIN D3 [Concomitant]
     Active Substance: CHOLECALCIFEROL
     Dosage: 2000 IU, 1X/DAY
     Route: 048
  6. FISH OIL [Concomitant]
     Active Substance: FISH OIL
     Dosage: 900 UNKNOWN UNITS ONCE A DAY
     Route: 048
  7. TWYNSTA [Concomitant]
     Active Substance: AMLODIPINE BESYLATE\TELMISARTAN
     Indication: Blood pressure abnormal
     Dosage: 80/10, 1X/DAY
     Route: 048
  8. CAPECITABINE [Concomitant]
     Active Substance: CAPECITABINE
     Dosage: 2000 MG, CYCLIC  (2X/DAY, 1 MORE CYCLE, START ON JUNE 23, JULY 7 COMPLETE)
     Route: 048
  9. FASLODEX [Concomitant]
     Active Substance: FULVESTRANT
     Dosage: 250 MG
     Route: 030

REACTIONS (3)
  - Death [Fatal]
  - Cough [Not Recovered/Not Resolved]
  - Muscle spasms [Unknown]

NARRATIVE: CASE EVENT DATE: 20200101
